FAERS Safety Report 9993468 (Version 1)
Quarter: 2014Q1

REPORT INFORMATION
  Report Type: Spontaneous
  Country: US (occurrence: US)
  Receive Date: 20140310
  Receipt Date: 20140310
  Transmission Date: 20141002
  Serious: Yes (Other)
  Sender: FDA-Public Use
  Company Number: US-ACTAVIS-2014-03951

PATIENT
  Age: 16 Year
  Sex: Female

DRUGS (1)
  1. NEXT CHOICE ONE DOSE (WATSON LABORATORIES) [Suspect]
     Indication: ORAL CONTRACEPTION
     Dosage: UNK
     Route: 048
     Dates: start: 20140224, end: 20140224

REACTIONS (3)
  - Abdominal pain [Recovered/Resolved]
  - Haemoptysis [Recovered/Resolved]
  - Drug dispensing error [Recovered/Resolved]
